FAERS Safety Report 9444033 (Version 1)
Quarter: 2013Q3

REPORT INFORMATION
  Report Type: Spontaneous
  Country: BR (occurrence: BR)
  Receive Date: 20130807
  Receipt Date: 20130807
  Transmission Date: 20140515
  Serious: Yes (Hospitalization, Other)
  Sender: FDA-Public Use
  Company Number: BR-AMGEN-BRASP2013040671

PATIENT
  Age: 70 Year
  Sex: Female
  Weight: 40 kg

DRUGS (5)
  1. ENBREL [Suspect]
     Indication: RHEUMATOID ARTHRITIS
     Dosage: 50 MG, ONCE WEEKLY
     Route: 058
     Dates: start: 201210, end: 201304
  2. PREDNISONE [Concomitant]
     Dosage: ONE TABLET OF 5 MG, 2X/DAY
     Route: 048
  3. METHOTREXATE [Concomitant]
     Dosage: 4 TABLETS, ONCE WEEKLY
     Route: 048
  4. CELEBRA [Concomitant]
     Dosage: UNK
  5. TAPAZOL                            /00022901/ [Concomitant]
     Indication: HYPERTHYROIDISM
     Dosage: UNK

REACTIONS (2)
  - Wound [Unknown]
  - Erysipelas [Recovered/Resolved with Sequelae]
